FAERS Safety Report 21920251 (Version 1)
Quarter: 2023Q1

REPORT INFORMATION
  Report Type: Spontaneous
  Country: US (occurrence: None)
  Receive Date: 20230127
  Receipt Date: 20230127
  Transmission Date: 20230418
  Serious: No
  Sender: FDA-Public Use
  Company Number: None

PATIENT
  Sex: 0

DRUGS (1)
  1. SIBUTRAMINE HYDROCHLORIDE [Suspect]
     Active Substance: SIBUTRAMINE HYDROCHLORIDE

REACTIONS (5)
  - Nasopharyngitis [None]
  - Pruritus [None]
  - Lacrimation increased [None]
  - Swelling face [None]
  - Pharyngeal swelling [None]
